FAERS Safety Report 5452497-6 (Version None)
Quarter: 2007Q3

REPORT INFORMATION
  Report Type: 
  Country: None (occurrence: None)
  Receive Date: 20070914
  Receipt Date: 20070904
  Transmission Date: 20080115
  Serious: Yes (Hospitalization)
  Sender: FDA-Public Use
  Company Number: FR-BAYER-200710180BFR

PATIENT
  Age: 75 Year
  Sex: Male

DRUGS (7)
  1. IZILOX [Suspect]
     Indication: CHRONIC OBSTRUCTIVE PULMONARY DISEASE
     Route: 048
     Dates: start: 20061020, end: 20061102
  2. FLIXOTIDE [Suspect]
     Indication: UNEVALUABLE EVENT
     Route: 055
     Dates: start: 20061020, end: 20061102
  3. SINGULAIR [Suspect]
     Indication: UNEVALUABLE EVENT
     Route: 048
     Dates: start: 20061020, end: 20061102
  4. AUGMENTIN '125' [Suspect]
     Indication: CHRONIC OBSTRUCTIVE PULMONARY DISEASE
     Route: 048
     Dates: start: 20061020, end: 20061102
  5. SIMVASTATIN [Concomitant]
     Indication: UNEVALUABLE EVENT
  6. VASTAREL [Concomitant]
     Indication: UNEVALUABLE EVENT
  7. NEXIUM [Concomitant]
     Indication: UNEVALUABLE EVENT

REACTIONS (9)
  - ASTHENIA [None]
  - BLOOD ALKALINE PHOSPHATASE INCREASED [None]
  - BLOOD BILIRUBIN INCREASED [None]
  - GAMMA-GLUTAMYLTRANSFERASE INCREASED [None]
  - HEPATITIS CHOLESTATIC [None]
  - JAUNDICE [None]
  - PRURITUS [None]
  - RENAL TUBULAR DISORDER [None]
  - WEIGHT DECREASED [None]
